FAERS Safety Report 6365147-1 (Version None)
Quarter: 2009Q3

REPORT INFORMATION
  Report Type: 
  Country: None (occurrence: None)
  Receive Date: 20090919
  Receipt Date: 20090806
  Transmission Date: 20100115
  Serious: No
  Sender: FDA-Public Use
  Company Number: US-ABBOTT-09P-163-0590081-00

PATIENT
  Sex: Female
  Weight: 89.438 kg

DRUGS (8)
  1. HUMIRA [Suspect]
     Indication: CROHN'S DISEASE
     Dates: start: 20090527
  2. IMURAN [Concomitant]
     Indication: CROHN'S DISEASE
  3. TRAZODONE HCL [Concomitant]
     Indication: SLEEP DISORDER
  4. SINGULAIR [Concomitant]
     Indication: ASTHMA
  5. PROTONIX [Concomitant]
     Indication: GASTROOESOPHAGEAL REFLUX DISEASE
  6. LEVOTHYROXINE SODIUM [Concomitant]
     Indication: HYPOTHYROIDISM
  7. ESCITALOPRAM [Concomitant]
     Indication: DEPRESSION
  8. IBUPROFEN [Concomitant]
     Indication: ARTHRALGIA

REACTIONS (4)
  - DRUG DOSE OMISSION [None]
  - GASTROOESOPHAGEAL REFLUX DISEASE [None]
  - LARYNGITIS [None]
  - RESPIRATORY TRACT CONGESTION [None]
